FAERS Safety Report 7158760-5 (Version None)
Quarter: 2010Q4

REPORT INFORMATION
  Report Type: 
  Country: None (occurrence: None)
  Receive Date: 20101201
  Receipt Date: 20101118
  Transmission Date: 20110411
  Serious: Yes (Death)
  Sender: FDA-Public Use
  Company Number: UTC-002478

PATIENT
  Age: 43 Year
  Sex: Male

DRUGS (5)
  1. TYVASO [Suspect]
     Dosage: INHALATION
     Route: 055
     Dates: start: 20100723, end: 20101014
  2. COUMADIN [Concomitant]
  3. REVATIO [Concomitant]
  4. LETAIRIS (AMBRISENTAN) [Concomitant]
  5. DIURETICS (DIURETICS) [Concomitant]

REACTIONS (1)
  - DEATH [None]
